FAERS Safety Report 5748700-5 (Version None)
Quarter: 2008Q2

REPORT INFORMATION
  Report Type: 
  Country: None (occurrence: None)
  Receive Date: 20080521
  Receipt Date: 20080512
  Transmission Date: 20081010
  Serious: Yes (Death, Other)
  Sender: FDA-Public Use
  Company Number: GXKR2008ZA04383

PATIENT
  Age: 21 Year
  Sex: Female

DRUGS (6)
  1. DOXORUBICIN HCL [Suspect]
     Indication: ACUTE LYMPHOCYTIC LEUKAEMIA
     Dosage: CHOP 2 CYCLES (INTENSIFIED), UNKNOWN
  2. VINCRISTINE [Suspect]
     Indication: ACUTE LYMPHOCYTIC LEUKAEMIA
     Dosage: CHOP 2 CYCLES (INTENSIFIED), UNKNOWN
  3. PREDNISONE [Suspect]
     Indication: ACUTE LYMPHOCYTIC LEUKAEMIA
     Dosage: CHOP 2 CYCLES (INTENSIFIED), UNKNOWN
  4. CYCLOPHOSPHAMIDE [Suspect]
     Indication: ACUTE LYMPHOCYTIC LEUKAEMIA
     Dosage: CHOP 2 CYCLES (INTENSIFIED), UNKNOWN
  5. RED BLOOD CELLS [Concomitant]
  6. PLATELETS [Concomitant]

REACTIONS (4)
  - FEBRILE NEUTROPENIA [None]
  - HYPOTENSION [None]
  - MALARIA [None]
  - RENAL FAILURE [None]
